FAERS Safety Report 16771568 (Version 2)
Quarter: 2019Q4

REPORT INFORMATION
  Report Type: Spontaneous
  Country: US (occurrence: US)
  Receive Date: 20190904
  Receipt Date: 20191010
  Transmission Date: 20200122
  Serious: No
  Sender: FDA-Public Use
  Company Number: US-PFIZER INC-2019379099

PATIENT
  Age: 48 Year
  Sex: Female

DRUGS (1)
  1. PREGABALIN. [Suspect]
     Active Substance: PREGABALIN
     Dosage: UNK
     Dates: start: 20190819, end: 20190827

REACTIONS (3)
  - Malaise [Recovering/Resolving]
  - Drug hypersensitivity [Unknown]
  - Vomiting [Recovering/Resolving]
